FAERS Safety Report 23863520 (Version 1)
Quarter: 2024Q2

REPORT INFORMATION
  Report Type: Spontaneous
  Country: CN (occurrence: CN)
  Receive Date: 20240516
  Receipt Date: 20240516
  Transmission Date: 20240715
  Serious: Yes (Other)
  Sender: FDA-Public Use
  Company Number: CN-BAYER-2024A071581

PATIENT
  Age: 32 Year
  Sex: Female

DRUGS (2)
  1. MOXIFLOXACIN [Suspect]
     Active Substance: MOXIFLOXACIN
     Indication: Listeriosis
     Dosage: UNK
  2. BIAPENEM [Concomitant]
     Active Substance: BIAPENEM
     Indication: Listeriosis
     Dosage: UNK

REACTIONS (5)
  - Foetal death [None]
  - Off label use [None]
  - Maternal exposure during pregnancy [None]
  - Contraindicated product administered [None]
  - Contraindicated product prescribed [None]
